FAERS Safety Report 21802389 (Version 2)
Quarter: 2023Q1

REPORT INFORMATION
  Report Type: Spontaneous
  Country: JP (occurrence: JP)
  Receive Date: 20221230
  Receipt Date: 20230131
  Transmission Date: 20230418
  Serious: Yes (Hospitalization)
  Sender: FDA-Public Use
  Company Number: JP-TAKEDA-2022TJP077180

PATIENT
  Age: 73 Year
  Sex: Male

DRUGS (4)
  1. TEDUGLUTIDE [Suspect]
     Active Substance: TEDUGLUTIDE
     Indication: Product used for unknown indication
     Dosage: 2.5 MILLIGRAM/KILOGRAM
     Route: 058
     Dates: start: 20220912
  2. TEDUGLUTIDE [Suspect]
     Active Substance: TEDUGLUTIDE
     Indication: Product used for unknown indication
     Dosage: 2.5 MILLIGRAM/KILOGRAM
     Route: 058
     Dates: start: 20220912
  3. TEDUGLUTIDE [Suspect]
     Active Substance: TEDUGLUTIDE
     Indication: Product used for unknown indication
     Dosage: 2.5 MILLIGRAM/KILOGRAM
     Route: 058
     Dates: start: 20220912
  4. TEDUGLUTIDE [Suspect]
     Active Substance: TEDUGLUTIDE
     Indication: Product used for unknown indication
     Dosage: 2.5 MILLIGRAM/KILOGRAM
     Route: 058
     Dates: start: 20220912

REACTIONS (2)
  - Fracture [Unknown]
  - Abdominal pain [Recovered/Resolved]

NARRATIVE: CASE EVENT DATE: 20221019
